FAERS Safety Report 8182137-7 (Version None)
Quarter: 2012Q1

REPORT INFORMATION
  Report Type: 
  Country: None (occurrence: None)
  Receive Date: 20120302
  Receipt Date: 20120124
  Transmission Date: 20120608
  Serious: Yes (Hospitalization)
  Sender: FDA-Public Use
  Company Number: PHHY2012FR003939

PATIENT
  Sex: Male
  Weight: 65 kg

DRUGS (9)
  1. LAMICTAL [Concomitant]
     Dosage: 200 MG, DAILY
     Route: 048
  2. RITALIN [Suspect]
     Dosage: 10 MG, ORAL AT 100 MG DAILY
     Route: 048
  3. RITALIN [Suspect]
     Indication: NARCOLEPSY
     Dosage: 40 MG, ORAL, AT 120 MG DAILY
     Route: 048
  4. OXAZEPAM [Concomitant]
     Dosage: 30 MG, DAILY
     Route: 048
  5. LOXAPINE HCL [Concomitant]
     Dosage: 25 MG,DAILY
     Route: 048
  6. MEPRONIZINE [Concomitant]
     Dosage: 2 DF, DAILY
     Route: 048
  7. ATARAX [Concomitant]
  8. VENLAFAXINE [Concomitant]
     Dosage: 75 MG, DAILY
     Route: 048
  9. ZOLPIDEM [Concomitant]

REACTIONS (1)
  - OVERDOSE [None]
